FAERS Safety Report 7290622-5 (Version None)
Quarter: 2011Q1

REPORT INFORMATION
  Report Type: 
  Country: None (occurrence: None)
  Receive Date: 20110209
  Receipt Date: 20110209
  Transmission Date: 20110831
  Serious: Yes (Hospitalization)
  Sender: FDA-Public Use
  Company Number: None

PATIENT
  Age: 54 Year
  Sex: Male
  Weight: 86.1 kg

DRUGS (2)
  1. PROPOFOL [Suspect]
     Indication: ANAESTHESIA PROCEDURE
     Dosage: 40 MG ONCE IV
     Route: 042
     Dates: start: 20101103, end: 20101103
  2. BUPIVACAINE HCL [Suspect]
     Indication: ANAESTHESIA PROCEDURE
     Dosage: 25 MG ONCE IV
     Route: 042
     Dates: start: 20101103, end: 20101103

REACTIONS (2)
  - CONVULSION [None]
  - SINUS TACHYCARDIA [None]
